FAERS Safety Report 22040048 (Version 9)
Quarter: 2023Q2

REPORT INFORMATION
  Report Type: Report from Study
  Country: US (occurrence: US)
  Receive Date: 20230227
  Receipt Date: 20230629
  Transmission Date: 20230721
  Serious: Yes (Other)
  Sender: FDA-Public Use
  Company Number: US-002147023-NVSC2023US044433

PATIENT
  Sex: Male

DRUGS (4)
  1. PROMACTA [Suspect]
     Active Substance: ELTROMBOPAG OLAMINE
     Indication: Immune thrombocytopenia
     Dosage: 50 MG, QD
     Route: 048
  2. PROMACTA [Suspect]
     Active Substance: ELTROMBOPAG OLAMINE
     Dosage: 50 MG, QOD
     Route: 065
     Dates: start: 20230227
  3. PROMACTA [Suspect]
     Active Substance: ELTROMBOPAG OLAMINE
     Dosage: 50 MG, QOD
     Route: 048
     Dates: start: 20230327
  4. PROMACTA [Suspect]
     Active Substance: ELTROMBOPAG OLAMINE
     Dosage: 50 MG QD, (ONCE MONDAY WEDNESDAY FRIDAY)
     Route: 048
     Dates: start: 20230504

REACTIONS (6)
  - Hypertension [Not Recovered/Not Resolved]
  - Influenza [Recovering/Resolving]
  - Petechiae [Not Recovered/Not Resolved]
  - Nasopharyngitis [Recovered/Resolved]
  - Platelet count increased [Not Recovered/Not Resolved]
  - Diarrhoea [Recovered/Resolved]
